FAERS Safety Report 9641734 (Version 1)
Quarter: 2013Q4

REPORT INFORMATION
  Report Type: Spontaneous
  Country: US (occurrence: US)
  Receive Date: 20131023
  Receipt Date: 20131023
  Transmission Date: 20140711
  Serious: Yes (Hospitalization)
  Sender: FDA-Public Use
  Company Number: US-EXELIXIS-CABO-13003484

PATIENT
  Sex: Male

DRUGS (22)
  1. COMETRIQ [Suspect]
     Indication: RENAL CANCER
     Dosage: 60 MG, QD
     Route: 048
     Dates: start: 20130315
  2. FENOFIBRATE [Concomitant]
  3. AZOPT [Concomitant]
  4. COMBIGAN [Concomitant]
  5. TRAVATANZ [Concomitant]
  6. ALAWAY [Concomitant]
  7. XGEVA [Concomitant]
  8. CITRACAL [Concomitant]
  9. MEGACE [Concomitant]
  10. MS [Concomitant]
  11. ALBUTEROL [Concomitant]
  12. TYLENOL [Concomitant]
  13. ATIVAN [Concomitant]
  14. RITALIN [Concomitant]
  15. MUCINE [Concomitant]
  16. LOMOTIL [Concomitant]
  17. IMODIUM [Concomitant]
  18. ACETYLCYSTEINE [Concomitant]
  19. REMERON [Concomitant]
  20. ONDANSETRON [Concomitant]
  21. MIRALAX [Concomitant]
  22. SENOKOT [Concomitant]

REACTIONS (2)
  - Pharyngeal neoplasm [Unknown]
  - Off label use [Unknown]
